FAERS Safety Report 6293792-0 (Version None)
Quarter: 2009Q3

REPORT INFORMATION
  Report Type: 
  Country: None (occurrence: None)
  Receive Date: 20090803
  Receipt Date: 20090723
  Transmission Date: 20100115
  Serious: Yes (Hospitalization)
  Sender: FDA-Public Use
  Company Number: AU-ASTRAZENECA-2009SE05696

PATIENT
  Age: 48 Year
  Sex: Male

DRUGS (3)
  1. ATACAND [Suspect]
     Indication: ESSENTIAL HYPERTENSION
     Route: 048
  2. CLOZAPINE [Suspect]
     Indication: SCHIZOPHRENIA
     Route: 048
     Dates: start: 20031014
  3. OMEPRAZOLE [Concomitant]
     Route: 065

REACTIONS (2)
  - GRAND MAL CONVULSION [None]
  - HYPONATRAEMIA [None]
